FAERS Safety Report 18201907 (Version 1)
Quarter: 2020Q3

REPORT INFORMATION
  Report Type: Spontaneous
  Country: US (occurrence: US)
  Receive Date: 20200827
  Receipt Date: 20200827
  Transmission Date: 20201103
  Serious: Yes (Other)
  Sender: FDA-Public Use
  Company Number: None

PATIENT
  Age: 52 Year
  Sex: Female
  Weight: 103.5 kg

DRUGS (1)
  1. CIPROFLOXACIN. [Suspect]
     Active Substance: CIPROFLOXACIN
     Indication: URINARY TRACT INFECTION
     Dates: start: 20200817, end: 20200826

REACTIONS (5)
  - Pain in extremity [None]
  - Hypoaesthesia [None]
  - Myalgia [None]
  - Pelvic pain [None]
  - Asthenia [None]

NARRATIVE: CASE EVENT DATE: 20200817
